FAERS Safety Report 25606212 (Version 1)
Quarter: 2025Q3

REPORT INFORMATION
  Report Type: Spontaneous
  Country: US (occurrence: US)
  Receive Date: 20250725
  Receipt Date: 20250725
  Transmission Date: 20251021
  Serious: Yes (Other)
  Sender: PFIZER
  Company Number: US-PFIZER INC-PV202500089176

PATIENT

DRUGS (6)
  1. IRINOTECAN HYDROCHLORIDE [Suspect]
     Active Substance: IRINOTECAN HYDROCHLORIDE
  2. OXALIPLATIN [Suspect]
     Active Substance: OXALIPLATIN
  3. FLUOROURACIL [Suspect]
     Active Substance: FLUOROURACIL
  4. LEUCOVORIN CALCIUM [Suspect]
     Active Substance: LEUCOVORIN CALCIUM
  5. GEMZAR [Suspect]
     Active Substance: GEMCITABINE HYDROCHLORIDE
  6. ABRAXANE [Suspect]
     Active Substance: PACLITAXEL

REACTIONS (1)
  - Malignant neoplasm progression [Unknown]
